FAERS Safety Report 18777152 (Version 1)
Quarter: 2021Q1

REPORT INFORMATION
  Report Type: Spontaneous
  Country: US (occurrence: US)
  Receive Date: 20210122
  Receipt Date: 20210122
  Transmission Date: 20210419
  Serious: Yes (Disabling, Other)
  Sender: FDA-Public Use
  Company Number: US-ELI_LILLY_AND_COMPANY-US202101005765

PATIENT
  Sex: Female

DRUGS (4)
  1. HUMALOG [Suspect]
     Active Substance: INSULIN LISPRO
     Dosage: 3 DOSAGE FORM, DAILY
     Route: 065
     Dates: start: 2006
  2. HUMALOG [Suspect]
     Active Substance: INSULIN LISPRO
     Indication: PRODUCT USED FOR UNKNOWN INDICATION
     Dosage: 3 DOSAGE FORM, DAILY
     Route: 065
     Dates: start: 2006
  3. HUMALOG [Suspect]
     Active Substance: INSULIN LISPRO
     Indication: PRODUCT USED FOR UNKNOWN INDICATION
     Dosage: 3 DOSAGE FORM, DAILY
     Route: 065
     Dates: start: 2006
  4. HUMALOG [Suspect]
     Active Substance: INSULIN LISPRO
     Dosage: 3 DOSAGE FORM, DAILY
     Route: 065
     Dates: start: 2006

REACTIONS (4)
  - Cardiac failure [Unknown]
  - Arthritis [Unknown]
  - Spinal stenosis [Unknown]
  - Renal failure [Unknown]
